FAERS Safety Report 8229436-8 (Version None)
Quarter: 2012Q1

REPORT INFORMATION
  Report Type: 
  Country: None (occurrence: None)
  Receive Date: 20120322
  Receipt Date: 20120315
  Transmission Date: 20120608
  Serious: Yes (Life-Threatening, Hospitalization)
  Sender: FDA-Public Use
  Company Number: FR-ROCHE-1021050

PATIENT
  Sex: Female
  Weight: 55 kg

DRUGS (11)
  1. INDAPAMIDE [Concomitant]
     Dates: end: 20120110
  2. ACETAMINOPHEN [Concomitant]
     Dates: start: 19960101, end: 20120110
  3. VALACYCLOVIR HYDROCHLORIDE [Concomitant]
     Dates: start: 20100101, end: 20111208
  4. TOCILIZUMAB [Suspect]
     Indication: RHEUMATOID ARTHRITIS
     Dosage: 544 MG
     Dates: start: 20110818, end: 20110915
  5. SUTENT [Concomitant]
  6. FOLIC ACID [Concomitant]
     Dates: start: 20080101, end: 20111208
  7. METHOTREXATE [Concomitant]
     Indication: RHEUMATOID ARTHRITIS
     Dates: start: 20080101, end: 20111208
  8. METHOTREXATE [Concomitant]
     Route: 048
  9. METHOTREXATE [Concomitant]
     Route: 048
     Dates: start: 20080101, end: 20111208
  10. TOCILIZUMAB [Suspect]
     Dosage: 264 MG
     Dates: start: 20110915
  11. MOTILYO [Concomitant]
     Dates: start: 20110101, end: 20120110

REACTIONS (4)
  - NEUTROPENIA [None]
  - RENAL CANCER METASTATIC [None]
  - METASTASES TO BONE [None]
  - MALIGNANT PLEURAL EFFUSION [None]
